FAERS Safety Report 25921687 (Version 1)
Quarter: 2025Q4

REPORT INFORMATION
  Report Type: Spontaneous
  Country: US (occurrence: US)
  Receive Date: 20251014
  Receipt Date: 20251014
  Transmission Date: 20260118
  Serious: No
  Sender: AXSOME THERAPEUTICS
  Company Number: US-AXS-AXS202510-001727

PATIENT

DRUGS (1)
  1. SYMBRAVO [Suspect]
     Active Substance: MELOXICAM\RIZATRIPTAN BENZOATE
     Indication: Product used for unknown indication
     Dosage: UNKNOWN
     Route: 065

REACTIONS (5)
  - Drug interaction [Unknown]
  - Chills [Unknown]
  - Palpitations [Unknown]
  - Urticaria [Unknown]
  - Rash [Unknown]
